FAERS Safety Report 5251446-3 (Version None)
Quarter: 2007Q1

REPORT INFORMATION
  Report Type: 
  Country: None (occurrence: None)
  Receive Date: 20070228
  Receipt Date: 20060505
  Transmission Date: 20070707
  Serious: No
  Sender: FDA-Public Use
  Company Number: US-GLAXOSMITHKLINE-A0604961A

PATIENT
  Age: 19 Year
  Sex: Male

DRUGS (4)
  1. LAMICTAL [Suspect]
     Indication: BIPOLAR DISORDER
     Dosage: 200MG PER DAY
     Route: 048
     Dates: start: 20050401
  2. LITHIUM CARBONATE [Concomitant]
     Route: 065
  3. ZYPREXA [Concomitant]
  4. SEROQUEL [Concomitant]

REACTIONS (1)
  - DIPLOPIA [None]
